FAERS Safety Report 9396834 (Version 1)
Quarter: 2013Q3

REPORT INFORMATION
  Report Type: Spontaneous
  Country: FR (occurrence: FR)
  Receive Date: 20130712
  Receipt Date: 20130712
  Transmission Date: 20140515
  Serious: Yes (Other)
  Sender: FDA-Public Use
  Company Number: FR-009507513-1307FRA002418

PATIENT
  Age: 82 Year
  Sex: Male

DRUGS (6)
  1. EZETROL [Suspect]
     Indication: PRODUCT USED FOR UNKNOWN INDICATION
     Dosage: 10 MG, QD
     Route: 048
     Dates: start: 201204, end: 20130514
  2. EZETROL [Suspect]
     Dosage: 10 MG, QD
     Route: 048
     Dates: start: 20130516, end: 20130520
  3. DUOPLAVIN [Concomitant]
  4. CARDENSIEL [Concomitant]
  5. COZAAR 50 MG, COMPRIM? PELLICUL? [Concomitant]
  6. PREVISCAN [Concomitant]

REACTIONS (1)
  - Oedema peripheral [Recovered/Resolved]
